FAERS Safety Report 5011940-7 (Version None)
Quarter: 2006Q2

REPORT INFORMATION
  Report Type: 
  Country: None (occurrence: None)
  Receive Date: 20060526
  Receipt Date: 20060516
  Transmission Date: 20061013
  Serious: Yes (Other)
  Sender: FDA-Public Use
  Company Number: US-ROCHE-448484

PATIENT
  Sex: Female
  Weight: 3.2 kg

DRUGS (1)
  1. ACCUTANE [Suspect]
     Dates: start: 19901002, end: 19910615

REACTIONS (4)
  - DRUG EXPOSURE DURING PREGNANCY [None]
  - INFANT [None]
  - PREMATURE LABOUR [None]
  - UMBILICAL CORD AROUND NECK [None]
